FAERS Safety Report 5732012-X (Version None)
Quarter: 2008Q2

REPORT INFORMATION
  Report Type: 
  Country: None (occurrence: None)
  Receive Date: 20080508
  Receipt Date: 20080506
  Transmission Date: 20081010
  Serious: Yes (Death)
  Sender: FDA-Public Use
  Company Number: FR-ASTRAZENECA-2008CG00693

PATIENT
  Age: 54 Year
  Sex: Male

DRUGS (3)
  1. SYMBICORT [Suspect]
     Indication: BRONCHITIS
     Route: 055
     Dates: start: 20080101, end: 20080101
  2. PYOSTACINE [Concomitant]
     Indication: BRONCHITIS
     Route: 048
     Dates: start: 20080101, end: 20080101
  3. LEVOTHYROXINE SODIUM [Concomitant]
     Indication: HYPOTHYROIDISM
     Route: 048

REACTIONS (1)
  - SUDDEN DEATH [None]
